FAERS Safety Report 9901171 (Version 2)
Quarter: 2014Q1

REPORT INFORMATION
  Report Type: Report from Study
  Country: JP (occurrence: JP)
  Receive Date: 20140217
  Receipt Date: 20140217
  Transmission Date: 20141002
  Serious: Yes (Hospitalization)
  Sender: FDA-Public Use
  Company Number: JP-ASTELLAS-2013JP008346

PATIENT
  Age: 76 Year
  Sex: Male

DRUGS (4)
  1. MIRABEGRON [Suspect]
     Indication: HYPERTONIC BLADDER
     Dosage: 50 MG, UID/QD
     Route: 048
     Dates: start: 20121114, end: 20121212
  2. MIRABEGRON [Suspect]
     Dosage: 25 MG, UID/QD
     Route: 048
     Dates: start: 20121017, end: 20121113
  3. VESICARE [Concomitant]
     Indication: HYPERTONIC BLADDER
     Dosage: 2.5 MG, UID/QD
     Route: 048
     Dates: start: 20120530, end: 20121017
  4. HARNAL [Concomitant]
     Indication: BENIGN PROSTATIC HYPERPLASIA
     Dosage: 0.2 MG, UID/QD
     Route: 048
     Dates: start: 20120130, end: 20121218

REACTIONS (3)
  - Appendicitis [Recovering/Resolving]
  - Intestinal obstruction [Recovering/Resolving]
  - Postoperative hernia [Recovering/Resolving]
